FAERS Safety Report 23885017 (Version 1)
Quarter: 2024Q2

REPORT INFORMATION
  Report Type: Report from Study
  Country: US (occurrence: US)
  Receive Date: 20240522
  Receipt Date: 20240522
  Transmission Date: 20240716
  Serious: Yes (Other)
  Sender: FDA-Public Use
  Company Number: US-ABBVIE-5764827

PATIENT
  Age: 71 Year
  Sex: Male

DRUGS (1)
  1. SKYRIZI [Suspect]
     Active Substance: RISANKIZUMAB-RZAA
     Indication: Crohn^s disease
     Route: 058
     Dates: start: 20231219

REACTIONS (3)
  - Nodule [Recovering/Resolving]
  - Fistula [Recovering/Resolving]
  - Gastrointestinal pain [Unknown]

NARRATIVE: CASE EVENT DATE: 20240515
